FAERS Safety Report 5241709-X (Version None)
Quarter: 2007Q1

REPORT INFORMATION
  Report Type: 
  Country: None (occurrence: None)
  Receive Date: 20070220
  Receipt Date: 20070212
  Transmission Date: 20070707
  Serious: Yes (Hospitalization)
  Sender: FDA-Public Use
  Company Number: IT-ROCHE-482340

PATIENT
  Age: 63 Year
  Sex: Male

DRUGS (1)
  1. TICLID [Suspect]
     Route: 048
     Dates: start: 20061117, end: 20061226

REACTIONS (4)
  - BRONCHOPNEUMONIA [None]
  - NEUTROPENIA [None]
  - PYREXIA [None]
  - THROMBOCYTOPENIA [None]
